FAERS Safety Report 5330259-8 (Version None)
Quarter: 2007Q2

REPORT INFORMATION
  Report Type: 
  Country: None (occurrence: None)
  Receive Date: 20070515
  Receipt Date: 20070430
  Transmission Date: 20071010
  Serious: Yes (Death)
  Sender: FDA-Public Use
  Company Number: 16415

PATIENT
  Age: 60 Year
  Sex: Female

DRUGS (10)
  1. LEUCOVORIN CALCIUM [Suspect]
     Indication: COLORECTAL CANCER METASTATIC
     Dosage: 740 MG IV
     Route: 042
     Dates: start: 20070213, end: 20070213
  2. ELOXATIN [Suspect]
     Indication: COLORECTAL CANCER METASTATIC
     Dosage: 157 MG IV
     Route: 042
     Dates: start: 20070213, end: 20070213
  3. FLUOROURACIL [Suspect]
     Indication: COLORECTAL CANCER METASTATIC
     Dosage: 4440 MG IV
     Route: 042
     Dates: start: 20070216, end: 20070216
  4. BEVACIZUMAB [Suspect]
     Indication: COLORECTAL CANCER METASTATIC
     Dosage: 445 MG IV
     Route: 042
     Dates: start: 20070213, end: 20070213
  5. VALSARTAN [Concomitant]
  6. EZETIMIBE [Concomitant]
  7. MELOXICAM [Concomitant]
  8. NIACIN [Concomitant]
  9. ACETYLSALICYLIC ACID SRT [Concomitant]
  10. FLUTICASONE PROPIONATE [Concomitant]

REACTIONS (3)
  - MYOCARDIAL INFARCTION [None]
  - PULMONARY EMBOLISM [None]
  - SUDDEN CARDIAC DEATH [None]
